FAERS Safety Report 12465513 (Version 2)
Quarter: 2016Q3

REPORT INFORMATION
  Report Type: Spontaneous
  Country: US (occurrence: US)
  Receive Date: 20160614
  Receipt Date: 20160831
  Transmission Date: 20161109
  Serious: No
  Sender: FDA-Public Use
  Company Number: GXBR2016US001506

PATIENT
  Sex: Female
  Weight: 76.19 kg

DRUGS (1)
  1. GLATOPA [Suspect]
     Active Substance: GLATIRAMER ACETATE
     Indication: MULTIPLE SCLEROSIS
     Dosage: 20 MG, QD
     Route: 065

REACTIONS (11)
  - Headache [Recovered/Resolved]
  - Balance disorder [Unknown]
  - Nausea [Recovered/Resolved]
  - Arthralgia [Recovered/Resolved]
  - Dizziness [Recovered/Resolved]
  - Pruritus [Unknown]
  - Malaise [Unknown]
  - Gait disturbance [Unknown]
  - Multiple sclerosis relapse [Unknown]
  - Drug ineffective [Not Recovered/Not Resolved]
  - Feeling abnormal [Unknown]
